FAERS Safety Report 4983119-6 (Version None)
Quarter: 2006Q2

REPORT INFORMATION
  Report Type: 
  Country: None (occurrence: None)
  Receive Date: 20060419
  Receipt Date: 20060406
  Transmission Date: 20061013
  Serious: Yes (Other)
  Sender: FDA-Public Use
  Company Number: 2006050628

PATIENT
  Sex: Male

DRUGS (3)
  1. EPELIN KAPSEALS                       (PHENYTOIN SODIUM) [Suspect]
     Indication: TAENIASIS
     Dosage: ORAL
     Route: 048
     Dates: start: 19930101
  2. PHENYTOIN SODIUM [Suspect]
     Indication: TAENIASIS
     Dosage: ORAL
     Route: 048
  3. HIDANTAL          (PHENYTOIN) [Suspect]
     Indication: TAENIASIS

REACTIONS (4)
  - CONVULSION [None]
  - DIZZINESS [None]
  - DRUG EFFECT DECREASED [None]
  - ECONOMIC PROBLEM [None]
